FAERS Safety Report 8986752 (Version 1)
Quarter: 2012Q4

REPORT INFORMATION
  Report Type: 
  Country: CH (occurrence: CH)
  Receive Date: 20121226
  Receipt Date: 20121226
  Transmission Date: 20130627
  Serious: Yes (Other)
  Sender: FDA-Public Use
  Company Number: CH-ROCHE-1172094

PATIENT
  Age: 77 Year
  Sex: Female

DRUGS (6)
  1. MABTHERA [Suspect]
     Indication: GRANULOMATOSIS WITH POLYANGIITIS
     Dosage: 2 total
     Route: 042
     Dates: start: 20070515, end: 20070525
  2. CELLCEPT [Suspect]
     Indication: GRANULOMATOSIS WITH POLYANGIITIS
     Route: 065
  3. PREDNISONE [Suspect]
     Indication: GRANULOMATOSIS WITH POLYANGIITIS
     Route: 065
  4. ASPIRIN CARDIO [Concomitant]
     Route: 065
  5. COSAAR [Concomitant]
     Route: 065
  6. CALCIMAGON-D3 [Concomitant]
     Route: 065

REACTIONS (1)
  - Colitis [Recovered/Resolved]
